FAERS Safety Report 10014418 (Version 2)
Quarter: 2014Q2

REPORT INFORMATION
  Report Type: Spontaneous
  Country: TW (occurrence: TW)
  Receive Date: 20140317
  Receipt Date: 20140408
  Transmission Date: 20141212
  Serious: Yes (Death, Hospitalization, Other)
  Sender: FDA-Public Use
  Company Number: TW-AMGEN-TWNSP2014018481

PATIENT
  Age: 50 Year
  Sex: Male

DRUGS (1)
  1. ENBREL [Suspect]
     Indication: PSORIATIC ARTHROPATHY
     Dosage: 25 MG, 2X/WEEK
     Route: 058
     Dates: start: 201003

REACTIONS (10)
  - Death [Fatal]
  - Ascites [Unknown]
  - Dehydration [Unknown]
  - Haematochezia [Unknown]
  - Intestinal perforation [Unknown]
  - Abdominal pain [Unknown]
  - Hypotension [Unknown]
  - Renal failure acute [Unknown]
  - Infection [Unknown]
  - Nasopharyngitis [Unknown]
